FAERS Safety Report 5123338-1 (Version None)
Quarter: 2006Q4

REPORT INFORMATION
  Report Type: 
  Country: None (occurrence: None)
  Receive Date: 20061005
  Receipt Date: 20060928
  Transmission Date: 20070319
  Serious: Yes (Other)
  Sender: FDA-Public Use
  Company Number: BEWYE064228SEP06

PATIENT

DRUGS (1)
  1. EFFEXOR [Suspect]
     Dosage: 150 MG 1X PER 1 DAY
     Route: 048

REACTIONS (1)
  - PULMONARY FIBROSIS [None]
